FAERS Safety Report 5963277-7 (Version None)
Quarter: 2008Q4

REPORT INFORMATION
  Report Type: 
  Country: None (occurrence: None)
  Receive Date: 20081119
  Receipt Date: 20080903
  Transmission Date: 20090506
  Serious: No
  Sender: FDA-Public Use
  Company Number: WAES 0809USA00518

PATIENT
  Age: 64 Year
  Sex: Female

DRUGS (3)
  1. JANUVIA [Suspect]
     Indication: DIABETES MELLITUS
     Dosage: 25 MG/PO ; 50 MG/PO
     Route: 048
     Dates: start: 20080101, end: 20080101
  2. JANUVIA [Suspect]
     Indication: DIABETES MELLITUS
     Dosage: 25 MG/PO ; 50 MG/PO
     Route: 048
     Dates: start: 20080501, end: 20080101
  3. METFORMIN HCL [Concomitant]

REACTIONS (2)
  - DYSPHAGIA [None]
  - SWOLLEN TONGUE [None]
